FAERS Safety Report 6999441-8 (Version None)
Quarter: 2010Q3

REPORT INFORMATION
  Report Type: 
  Country: None (occurrence: None)
  Receive Date: 20100920
  Receipt Date: 20070625
  Transmission Date: 20110219
  Serious: Yes (Hospitalization)
  Sender: FDA-Public Use
  Company Number: US-ASTRAZENECA-2006UW12225

PATIENT
  Age: 15277 Day
  Sex: Male
  Weight: 124.3 kg

DRUGS (18)
  1. SEROQUEL [Suspect]
     Indication: MENTAL DISORDER
     Dosage: STRENGTH- 25 MG, 200 MG.  DOSE- 50MG-300 MG DAILY
     Route: 048
     Dates: start: 19991026
  2. ZYPREXA [Suspect]
     Dosage: STRENGTH 10MG-20MG DAILY  DOSE 10MG, 15MG
     Dates: start: 20031014
  3. ABILIFY [Concomitant]
  4. GEODON [Concomitant]
  5. HALDOL [Concomitant]
     Dates: start: 19810101
  6. THORAZINE [Concomitant]
  7. DEPAKOTE [Concomitant]
     Dosage: STRENGTH-  500MG, 1000MG  DOSE- 500MG-2000MG
  8. ATACAND [Concomitant]
     Dosage: 12.5MG-32 MG DAILY
     Route: 048
  9. HYDROCHLOROTHIAZIDE [Concomitant]
     Indication: HYPERTENSION
     Route: 048
     Dates: start: 20040816
  10. NORVASC [Concomitant]
     Route: 048
     Dates: start: 20031029
  11. ZOCOR [Concomitant]
     Indication: HYPERCHOLESTEROLAEMIA
     Dosage: 40-80 MG DAILY
     Route: 048
     Dates: start: 20031029
  12. LOPID [Concomitant]
     Indication: DYSLIPIDAEMIA
     Route: 048
     Dates: start: 20030709
  13. LOPID [Concomitant]
     Indication: HYPERCHOLESTEROLAEMIA
     Route: 048
     Dates: start: 20030709
  14. ARTANE [Concomitant]
     Dosage: STRENGTH- 2MG, 5MG.  DOSE- 2MG DAILY AT NIGHT
  15. LASIX [Concomitant]
     Route: 048
  16. LEVAQUIN [Concomitant]
     Route: 048
  17. LIPITOR [Concomitant]
     Dates: start: 20040106
  18. DIOVAN [Concomitant]
     Indication: HYPERTENSION
     Dosage: 12.5MG-160MG DAILY
     Route: 048
     Dates: start: 20041019

REACTIONS (5)
  - BLOOD CHOLESTEROL INCREASED [None]
  - BLOOD TRIGLYCERIDES INCREASED [None]
  - DIABETES MELLITUS [None]
  - DIABETIC KETOACIDOSIS [None]
  - TYPE 2 DIABETES MELLITUS [None]
